FAERS Safety Report 6658808-8 (Version None)
Quarter: 2010Q1

REPORT INFORMATION
  Report Type: 
  Country: None (occurrence: None)
  Receive Date: 20100325
  Receipt Date: 20100311
  Transmission Date: 20100710
  Serious: Yes (Other)
  Sender: FDA-Public Use
  Company Number: CTI_01160_2010

PATIENT
  Age: 12 Month
  Sex: Male

DRUGS (2)
  1. SPECTRACEF [Suspect]
     Indication: CELLULITIS
     Dosage: 50 MG, TID, FINE GRANULES ORAL
     Route: 048
     Dates: start: 20100224, end: 20100224
  2. ANTIBIOTICS - RESISTANT LACTIC ACID BACTERIAE [Concomitant]

REACTIONS (6)
  - ANAPHYLACTOID REACTION [None]
  - ASTHENIA [None]
  - DECREASED APPETITE [None]
  - DYSPHAGIA [None]
  - PALLOR [None]
  - VACCINATION SITE CELLULITIS [None]
